FAERS Safety Report 20869154 (Version 1)
Quarter: 2022Q2

REPORT INFORMATION
  Report Type: Spontaneous
  Country: US (occurrence: None)
  Receive Date: 20220520
  Receipt Date: 20220520
  Transmission Date: 20220720
  Serious: Yes (unspecified)
  Sender: FDA-Public Use
  Company Number: None

PATIENT
  Age: 15 Year
  Sex: Female

DRUGS (1)
  1. .DELTA.8-TETRAHYDROCANNABINOL\HERBALS [Suspect]
     Active Substance: .DELTA.8-TETRAHYDROCANNABINOL\HERBALS

REACTIONS (6)
  - Cyanosis [None]
  - Vomiting [None]
  - Loss of consciousness [None]
  - Alcohol abuse [None]
  - Substance use [None]
  - Intentional overdose [None]

NARRATIVE: CASE EVENT DATE: 20220519
